FAERS Safety Report 9049409 (Version 2)
Quarter: 2013Q1

REPORT INFORMATION
  Report Type: Spontaneous
  Country: DE (occurrence: DE)
  Receive Date: 20130125
  Receipt Date: 20130125
  Transmission Date: 20140127
  Serious: Yes (Other)
  Sender: FDA-Public Use
  Company Number: PHHY2012DE118875

PATIENT
  Sex: Female
  Weight: 85 kg

DRUGS (6)
  1. GILENYA [Suspect]
     Indication: MULTIPLE SCLEROSIS
     Dosage: 0.5 MG, QD
     Route: 048
     Dates: start: 20110611
  2. CITALOPRAM [Concomitant]
     Indication: DEPRESSION
     Dosage: 30 MG, DAILY
     Route: 048
     Dates: start: 20100916
  3. FAMPYRA [Concomitant]
     Indication: MULTIPLE SCLEROSIS
     Dosage: 20 MG, DAILY
     Route: 048
     Dates: start: 20111117
  4. LYRICA [Concomitant]
     Indication: PAIN
     Dosage: 150 MG, DAILY
     Route: 048
     Dates: start: 20091008
  5. TORASEMIDE [Concomitant]
     Indication: OEDEMA
     Dosage: 20 MG, DAILY, 5 TIMES A WEEK
  6. TORASEMIDE [Concomitant]
     Dosage: 40 MG, DAILY, 2 TIMES A WEEK

REACTIONS (3)
  - Generalised oedema [Recovering/Resolving]
  - Face oedema [Recovering/Resolving]
  - Oedema peripheral [Recovering/Resolving]
